FAERS Safety Report 13874200 (Version 2)
Quarter: 2017Q3

REPORT INFORMATION
  Report Type: Spontaneous
  Country: NO (occurrence: NO)
  Receive Date: 20170816
  Receipt Date: 20170822
  Transmission Date: 20171127
  Serious: Yes (Death, Hospitalization)
  Sender: FDA-Public Use
  Company Number: NO-UNITED THERAPEUTICS-UNT-2017-011998

PATIENT
  Sex: Female

DRUGS (2)
  1. REMODULIN [Suspect]
     Active Substance: TREPROSTINIL
     Dosage: 0.01 ?G/KG, CONTINUING
     Route: 041
     Dates: start: 20170811
  2. REMODULIN [Suspect]
     Active Substance: TREPROSTINIL
     Indication: PULMONARY ARTERIAL HYPERTENSION
     Dosage: UNK
     Route: 041

REACTIONS (4)
  - Overdose [Fatal]
  - Asthenia [Fatal]
  - Product use issue [Unknown]
  - Hypotension [Fatal]

NARRATIVE: CASE EVENT DATE: 201708
